FAERS Safety Report 23366755 (Version 1)
Quarter: 2024Q1

REPORT INFORMATION
  Report Type: Spontaneous
  Country: CO (occurrence: CO)
  Receive Date: 20240104
  Receipt Date: 20240104
  Transmission Date: 20240409
  Serious: Yes (Other)
  Sender: FDA-Public Use
  Company Number: CO-PFIZER INC-PV202300209473

PATIENT
  Age: 60 Year
  Sex: Male

DRUGS (2)
  1. CAVERJECT [Suspect]
     Active Substance: ALPROSTADIL
     Dosage: UNK
  2. INSULIN GLARGINE [Concomitant]
     Active Substance: INSULIN GLARGINE
     Dosage: 8 U PREPRANDIAL AND 6 IU EVERY NIGHT
     Route: 058

REACTIONS (6)
  - Arteriosclerosis [Unknown]
  - Stenosis [Unknown]
  - Peripheral venous disease [Unknown]
  - Cyanosis [Unknown]
  - Pain in extremity [Unknown]
  - Sleep disorder [Unknown]
